FAERS Safety Report 17550558 (Version 1)
Quarter: 2020Q1

REPORT INFORMATION
  Report Type: Spontaneous
  Country: US (occurrence: US)
  Receive Date: 20200317
  Receipt Date: 20200317
  Transmission Date: 20200409
  Serious: No
  Sender: FDA-Public Use
  Company Number: US-RECORDATI RARE DISEASES-2081689

PATIENT
  Age: 12 Month
  Sex: Male

DRUGS (2)
  1. CARBAGLU [Suspect]
     Active Substance: CARGLUMIC ACID
     Indication: HYPERGLYCINAEMIA
     Dates: start: 20180207
  2. CARBAGLU [Suspect]
     Active Substance: CARGLUMIC ACID

REACTIONS (2)
  - Off label use [Unknown]
  - Vomiting [Not Recovered/Not Resolved]
